FAERS Safety Report 4784328-1 (Version None)
Quarter: 2005Q3

REPORT INFORMATION
  Report Type: 
  Country: None (occurrence: None)
  Receive Date: 20050930
  Receipt Date: 20050922
  Transmission Date: 20060218
  Serious: Yes (Other)
  Sender: FDA-Public Use
  Company Number: US-JNJFOC-20050702005

PATIENT
  Sex: Male
  Weight: 75.75 kg

DRUGS (2)
  1. RISPERDAL [Suspect]
     Dosage: (REDUCED TO 2 MG AT BEDTIME)
  2. RISPERDAL [Suspect]

REACTIONS (1)
  - ELECTROCARDIOGRAM QT CORRECTED INTERVAL PROLONGED [None]
